FAERS Safety Report 5143642-0 (Version None)
Quarter: 2006Q4

REPORT INFORMATION
  Report Type: 
  Country: None (occurrence: None)
  Receive Date: 20061103
  Receipt Date: 20060929
  Transmission Date: 20070319
  Serious: Yes (Other)
  Sender: FDA-Public Use
  Company Number: US-ALLERGAN-0605818US

PATIENT
  Age: 53 Year
  Sex: Female

DRUGS (1)
  1. BOTOX COSMETIC [Suspect]
     Indication: SKIN WRINKLING
     Dosage: UNK, SINGLE
     Route: 030
     Dates: start: 20060820, end: 20060820

REACTIONS (5)
  - INJECTION SITE ATROPHY [None]
  - INJECTION SITE INFECTION [None]
  - INJECTION SITE REACTION [None]
  - INJECTION SITE SCAR [None]
  - MIGRAINE [None]
